FAERS Safety Report 11185055 (Version 1)
Quarter: 2015Q2

REPORT INFORMATION
  Report Type: Spontaneous
  Country: US (occurrence: None)
  Receive Date: 20150601
  Receipt Date: 20150601
  Transmission Date: 20150821
  Serious: Yes (Hospitalization)
  Sender: FDA-Public Use
  Company Number: 2012-002623

PATIENT
  Age: 74 Year
  Sex: Female
  Weight: 80 kg

DRUGS (48)
  1. ACTONEL [Suspect]
     Active Substance: RISEDRONATE SODIUM
     Indication: OSTEOPENIA
     Route: 048
     Dates: start: 20081015, end: 201001
  2. FOSAMAX [Suspect]
     Active Substance: ALENDRONATE SODIUM
     Indication: OSTEOPENIA
     Route: 048
     Dates: start: 20010228, end: 20040223
  3. OSCAL D /00944201/ (CALCIUM CARBONATE, COLECALCIFEROL) [Concomitant]
  4. TRIAMCINOLONE [Concomitant]
     Active Substance: TRIAMCINOLONE
  5. SPIRIVA [Concomitant]
     Active Substance: TIOTROPIUM BROMIDE MONOHYDRATE
  6. ALLOPURINOL. [Concomitant]
     Active Substance: ALLOPURINOL
  7. VENOSTAT (BATROXOBIN) [Concomitant]
  8. MIRAPEX [Concomitant]
     Active Substance: PRAMIPEXOLE DIHYDROCHLORIDE
  9. SULINDAC. [Concomitant]
     Active Substance: SULINDAC
  10. TOBRAMYCIN. [Concomitant]
     Active Substance: TOBRAMYCIN
  11. PREDNISONE. [Concomitant]
     Active Substance: PREDNISONE
  12. ZOCOR [Concomitant]
     Active Substance: SIMVASTATIN
  13. POTASSIUM [Concomitant]
     Active Substance: POTASSIUM
  14. PREVACID [Concomitant]
     Active Substance: LANSOPRAZOLE
  15. FOLIC ACID. [Concomitant]
     Active Substance: FOLIC ACID
  16. DEXAMETHASONE. [Concomitant]
     Active Substance: DEXAMETHASONE
  17. LEVAQUIN [Concomitant]
     Active Substance: LEVOFLOXACIN
  18. HUMIRA [Concomitant]
     Active Substance: ADALIMUMAB
  19. ADVAIR HFA (FLUTICASONE PROPIONATE, SALMETEROL XINAFOATE) [Concomitant]
  20. ECOTRIN [Concomitant]
     Active Substance: ASPIRIN
  21. TOPROL XL [Concomitant]
     Active Substance: METOPROLOL SUCCINATE
  22. LASIX [Concomitant]
     Active Substance: FUROSEMIDE
  23. PLAVIX [Concomitant]
     Active Substance: CLOPIDOGREL BISULFATE
  24. VITAMIN B12 /00056201/ (CYANOCOBALAMIN) [Concomitant]
  25. CEPHALEXIN /00145501/ (CEFALEXIN) [Concomitant]
     Active Substance: CEPHALEXIN
  26. FLUCONAZOLE. [Concomitant]
     Active Substance: FLUCONAZOLE
  27. ACTONEL [Suspect]
     Active Substance: RISEDRONATE SODIUM
     Indication: OSTEOPOROSIS PROPHYLAXIS
     Route: 048
     Dates: start: 20081015, end: 201001
  28. SOTALOL. [Concomitant]
     Active Substance: SOTALOL
  29. PROTONIX [Concomitant]
     Active Substance: PANTOPRAZOLE SODIUM
  30. LEXAPRO [Concomitant]
     Active Substance: ESCITALOPRAM OXALATE
  31. HYDROCODONE W/PARACETAMOL (HYDROCODONE, PARACETAMOL) [Concomitant]
  32. VITAMIN C /00008001/ (ASCORBIC ACID) [Concomitant]
  33. NITROFURANTOIN. [Concomitant]
     Active Substance: NITROFURANTOIN
  34. ACTONEL [Suspect]
     Active Substance: RISEDRONATE SODIUM
     Indication: OSTEOPOROSIS PROPHYLAXIS
     Route: 048
     Dates: start: 20040626, end: 20081015
  35. ACTONEL [Suspect]
     Active Substance: RISEDRONATE SODIUM
     Indication: OSTEOPENIA
     Route: 048
     Dates: start: 20040626, end: 20081015
  36. FOSAMAX [Suspect]
     Active Substance: ALENDRONATE SODIUM
     Indication: OSTEOPOROSIS
     Route: 048
     Dates: start: 20010228, end: 20040223
  37. FOSAMAX [Suspect]
     Active Substance: ALENDRONATE SODIUM
     Indication: OSTEOPOROSIS PROPHYLAXIS
     Route: 048
     Dates: start: 20010228, end: 20040223
  38. SINGULAR (MONTELUKAST SODIUM) [Concomitant]
  39. ISOSORBIDE MONONITRATE. [Concomitant]
     Active Substance: ISOSORBIDE MONONITRATE
  40. TRAMADOL [Concomitant]
     Active Substance: TRAMADOL
  41. ACTONEL [Suspect]
     Active Substance: RISEDRONATE SODIUM
     Indication: OSTEOPOROSIS
     Route: 048
     Dates: start: 20040626, end: 20081015
  42. URO-MAG (MAGNESIUM OXIDE) [Concomitant]
  43. CLOTRIMAZOLE W/BETAMETHASONE DIPROPIONAT (BETAMETHASONE DIPROPIONATE, CLOTRIMAZONE) [Concomitant]
  44. ACTONEL [Suspect]
     Active Substance: RISEDRONATE SODIUM
     Indication: OSTEOPOROSIS
     Route: 048
     Dates: start: 20081015, end: 201001
  45. LEVOXYL (LEVOTHYROXINE SODIUM) [Concomitant]
  46. HUMULIN R (INSULIN HUMAN) [Concomitant]
  47. RESTORIL /00393701/ (TEMAZEPAM) [Concomitant]
  48. AZITHROMYCIN [Concomitant]
     Active Substance: AZITHROMYCIN ANHYDROUS

REACTIONS (8)
  - Fracture displacement [None]
  - Low turnover osteopathy [None]
  - Stress fracture [None]
  - Femur fracture [None]
  - Comminuted fracture [None]
  - Pathological fracture [None]
  - Fall [None]
  - Bone disorder [None]

NARRATIVE: CASE EVENT DATE: 20091226
